FAERS Safety Report 5137003-8 (Version None)
Quarter: 2006Q4

REPORT INFORMATION
  Report Type: 
  Country: None (occurrence: None)
  Receive Date: 20061030
  Receipt Date: 20061019
  Transmission Date: 20070319
  Serious: Yes (Hospitalization)
  Sender: FDA-Public Use
  Company Number: US-JNJFOC-20061004415

PATIENT
  Sex: Male

DRUGS (8)
  1. INFLIXIMAB [Suspect]
     Indication: RHEUMATOID ARTHRITIS
  2. CALCIUM+D [Concomitant]
  3. EFFEXOR [Concomitant]
  4. FOLIC ACID [Concomitant]
  5. METHOTREXATE SODIUM [Concomitant]
  6. PROTONIX [Concomitant]
  7. LUTEIN [Concomitant]
  8. NAMENDA [Concomitant]

REACTIONS (1)
  - MESENTERIC FIBROSIS [None]
